FAERS Safety Report 6404615-0 (Version None)
Quarter: 2009Q4

REPORT INFORMATION
  Report Type: 
  Country: None (occurrence: None)
  Receive Date: 20091016
  Receipt Date: 20091007
  Transmission Date: 20100525
  Serious: Yes (Hospitalization, Other)
  Sender: FDA-Public Use
  Company Number: US-ELI_LILLY_AND_COMPANY-US200910002092

PATIENT
  Sex: Female

DRUGS (21)
  1. FORTEO [Suspect]
     Dosage: UNK, UNK
     Dates: start: 20090801
  2. TYLENOL (CAPLET) [Concomitant]
     Dosage: UNK, DAILY (1/D)
  3. BENADRYL [Concomitant]
     Dosage: 25 MG, UNK
  4. ASACOL [Concomitant]
     Dosage: 1200 MG, 2/D
  5. SINGULAIR [Concomitant]
     Dosage: 10 MG, DAILY (1/D)
  6. CALCIUM CITRATE W/VITAMIN D NOS [Concomitant]
     Dosage: UNK, UNK
  7. MINOCYCLINE [Concomitant]
     Dosage: 100 MG, 2/D
  8. PRILOSEC [Concomitant]
     Dosage: UNK, 3/D
  9. PROVENTIL-HFA [Concomitant]
     Dosage: 6.7 G, 2/D
  10. NASONEX [Concomitant]
     Dosage: UNK, 2/D
  11. LIDODERM [Concomitant]
     Dosage: 5 %, AS NEEDED
     Route: 062
  12. ASMANEX TWISTHALER [Concomitant]
     Dosage: 220 UG, DAILY (1/D)
     Route: 055
  13. LASIX [Concomitant]
     Dosage: 40 MG, DAILY (1/D)
  14. HYDRALAZINE HCL [Concomitant]
     Dosage: 50 MG, 3/D
  15. DILTIAZEM [Concomitant]
     Dosage: 90 MG, 4/D
  16. KLOR-CON M [Concomitant]
     Dosage: 20 UNK, 2/D
  17. SPIRONOLACTONE [Concomitant]
     Dosage: 25 MG, QOD
  18. TRAMADOL HCL [Concomitant]
     Dosage: 50 MG, AS NEEDED
  19. FLEXERIL [Concomitant]
     Dosage: 10 MG, AS NEEDED
  20. CATAPRES-TTS-1 [Concomitant]
     Dosage: UNK, WEEKLY (1/W)
     Route: 062
  21. VITAMIN D3 [Concomitant]
     Dosage: 50000 IU, WEEKLY (1/W)

REACTIONS (8)
  - CARDIAC FAILURE CONGESTIVE [None]
  - DYSPNOEA [None]
  - DYSURIA [None]
  - FLUID OVERLOAD [None]
  - GASTROINTESTINAL VIRAL INFECTION [None]
  - INTESTINAL OBSTRUCTION [None]
  - MYOCARDIAL INFARCTION [None]
  - SWELLING [None]
